FAERS Safety Report 5684151-X (Version None)
Quarter: 2008Q1

REPORT INFORMATION
  Report Type: 
  Country: None (occurrence: None)
  Receive Date: 20080328
  Receipt Date: 20070427
  Transmission Date: 20080703
  Serious: No
  Sender: FDA-Public Use
  Company Number: US-AMGEN-KDL221945

PATIENT
  Sex: Female

DRUGS (8)
  1. NEULASTA [Suspect]
     Indication: CHEMOTHERAPY
     Dates: start: 20070216, end: 20070426
  2. CITALOPRAM [Concomitant]
  3. PROCHLORPERAZINE [Concomitant]
  4. TYLENOL (CAPLET) [Concomitant]
  5. HYDROCODONE BITARTRATE [Concomitant]
  6. CYTOXAN [Concomitant]
  7. DOXORUBICIN HYDROCHLORIDE [Concomitant]
  8. TAXOL [Concomitant]

REACTIONS (2)
  - ANAEMIA [None]
  - WHITE BLOOD CELL COUNT INCREASED [None]
